FAERS Safety Report 7317598-6 (Version None)
Quarter: 2011Q1

REPORT INFORMATION
  Report Type: 
  Country: None (occurrence: None)
  Receive Date: 20110226
  Receipt Date: 20101118
  Transmission Date: 20110831
  Serious: No
  Sender: FDA-Public Use
  Company Number: US-ALLERGAN-1015039US

PATIENT
  Age: 49 Year
  Sex: Female

DRUGS (3)
  1. POTASSIUM [Concomitant]
     Indication: BLOOD PRESSURE
     Dosage: UNK
  2. BOTOX COSMETIC [Suspect]
     Indication: SKIN WRINKLING
     Dosage: UNK
     Dates: start: 20091201, end: 20091201
  3. BLOOD PRESSURE MEDICATION NOS [Concomitant]
     Indication: BLOOD PRESSURE

REACTIONS (2)
  - EYELID PTOSIS [None]
  - DRUG INEFFECTIVE [None]
